FAERS Safety Report 8623676-1 (Version None)
Quarter: 2012Q3

REPORT INFORMATION
  Report Type: 
  Country: None (occurrence: None)
  Receive Date: 20120827
  Receipt Date: 20120822
  Transmission Date: 20120928
  Serious: Yes (Hospitalization, Other)
  Sender: FDA-Public Use
  Company Number: CO-PFIZER INC-2012207588

PATIENT
  Age: 63 Year
  Sex: Female

DRUGS (5)
  1. MONISID [Concomitant]
     Indication: CARDIAC DISORDER
     Dosage: UNK,1X/DAY
     Route: 048
     Dates: start: 20110801
  2. ACETAMINOPHEN [Concomitant]
     Dosage: UNK
  3. VASTAREL [Concomitant]
     Indication: CARDIAC DISORDER
     Dosage: UNK, 2X/DAY
     Route: 048
     Dates: start: 20120801
  4. ATORVASTATIN CALCIUM [Suspect]
     Indication: BLOOD CHOLESTEROL ABNORMAL
     Dosage: 40 MG, 1X/DAY
     Route: 048
     Dates: start: 20110801, end: 20110801
  5. LOSARTAN [Concomitant]
     Indication: HYPERTENSION
     Dosage: 50 MG, 1X/DAY
     Route: 048
     Dates: start: 20090101

REACTIONS (5)
  - EXERCISE TEST ABNORMAL [None]
  - DRUG INEFFECTIVE [None]
  - MEMORY IMPAIRMENT [None]
  - INFARCTION [None]
  - ANGIOPATHY [None]
